FAERS Safety Report 5094243-4 (Version None)
Quarter: 2006Q3

REPORT INFORMATION
  Report Type: 
  Country: None (occurrence: None)
  Receive Date: 20060831
  Receipt Date: 20060823
  Transmission Date: 20061208
  Serious: Yes (Other)
  Sender: FDA-Public Use
  Company Number: BPC-ZN-06-375

PATIENT
  Age: 67 Year
  Sex: Female

DRUGS (2)
  1. ZYBAN [Suspect]
     Indication: SMOKING CESSATION THERAPY
     Dosage: 150MG PER DAY
     Route: 048
     Dates: start: 20060806, end: 20060812
  2. ROSUVASTATIN [Concomitant]

REACTIONS (4)
  - ANXIETY [None]
  - HOMICIDAL IDEATION [None]
  - HOSTILITY [None]
  - INSOMNIA [None]
